FAERS Safety Report 5629609-4 (Version None)
Quarter: 2008Q1

REPORT INFORMATION
  Report Type: 
  Country: None (occurrence: None)
  Receive Date: 20080214
  Receipt Date: 20080206
  Transmission Date: 20080703
  Serious: Yes (Hospitalization)
  Sender: FDA-Public Use
  Company Number: CLOF-1000044

PATIENT
  Age: 48 Year
  Sex: Female
  Weight: 52 kg

DRUGS (18)
  1. CLOFARABINE (CLOFARABINE) SOLUTION FOR INFUSION [Suspect]
     Indication: ACUTE MYELOID LEUKAEMIA
     Dosage: 20 MG/M2, QDX5, INTRAVENOUS
     Route: 042
     Dates: start: 20071019, end: 20071023
  2. BUSULFAN (BUSULFAN) [Suspect]
     Indication: ACUTE MYELOID LEUKAEMIA
     Dosage: 3.2 MG/KG, QD, INTRAVENOUS
     Route: 042
     Dates: start: 20071020, end: 20071023
  3. TACROLIMUS [Concomitant]
  4. ACTIGALL [Concomitant]
  5. PROTONIX [Concomitant]
  6. ATIVAN [Concomitant]
  7. COMPAZINE (PROCHLORPERAZINE MALEATE) [Concomitant]
  8. OXYCODONE (OXYCODONE, PARACETAMOL) [Concomitant]
  9. LEVOTHYROXINE SODIUM [Concomitant]
  10. CLONAZEPAM [Concomitant]
  11. RESTASIS (CICLOSPORIN) [Concomitant]
  12. ACYCLOVIR [Concomitant]
  13. CALCIUM CITRATE (CALCIUM CITRATE) [Concomitant]
  14. FLUCONAZOLE [Concomitant]
  15. PREMARIN (ESTROGENS CONJUGATED, MEDROGESTONE) [Concomitant]
  16. SLOW-MAG (MAGNESIUM CHLORIDE ANHYDROUS) [Concomitant]
  17. PENTAMIDINE (PENTAMIDINE) [Concomitant]
  18. NORCO [Concomitant]

REACTIONS (2)
  - CYTOMEGALOVIRUS VIRAEMIA [None]
  - PLATELET COUNT DECREASED [None]
